FAERS Safety Report 9571015 (Version 2)
Quarter: 2013Q4

REPORT INFORMATION
  Report Type: Spontaneous
  Country: US (occurrence: US)
  Receive Date: 20131001
  Receipt Date: 20131204
  Transmission Date: 20140711
  Serious: No
  Sender: FDA-Public Use
  Company Number: US-009507513-1309USA012444

PATIENT
  Age: 30 Year
  Sex: Female
  Weight: 102.95 kg

DRUGS (1)
  1. IMPLANON [Suspect]
     Indication: CONTRACEPTION
     Dosage: STANDARD DOSE
     Route: 059
     Dates: start: 201304

REACTIONS (4)
  - Device deployment issue [Not Recovered/Not Resolved]
  - Device difficult to use [Not Recovered/Not Resolved]
  - Weight increased [Not Recovered/Not Resolved]
  - Device dislocation [Not Recovered/Not Resolved]
